FAERS Safety Report 13585362 (Version 1)
Quarter: 2017Q2

REPORT INFORMATION
  Report Type: Report from Study
  Country: BR (occurrence: BR)
  Receive Date: 20170526
  Receipt Date: 20170526
  Transmission Date: 20170830
  Serious: Yes (Other)
  Sender: FDA-Public Use
  Company Number: BR-GLAXOSMITHKLINE-BR2017GSK075541

PATIENT

DRUGS (3)
  1. BELIMUMAB [Suspect]
     Active Substance: BELIMUMAB
     Dosage: 681 MG, CYC
     Route: 042
     Dates: start: 20170403, end: 20170403
  2. BELIMUMAB [Suspect]
     Active Substance: BELIMUMAB
     Dosage: 685 MG, CYC
     Route: 042
     Dates: start: 20170508, end: 20170508
  3. BELIMUMAB [Suspect]
     Active Substance: BELIMUMAB
     Indication: SYSTEMIC LUPUS ERYTHEMATOSUS
     Dosage: 678 MG, CYC
     Route: 042
     Dates: start: 20170303, end: 20170503

REACTIONS (2)
  - Inappropriate schedule of drug administration [Recovered/Resolved]
  - Cataract operation [Unknown]
